FAERS Safety Report 12084080 (Version 1)
Quarter: 2016Q1

REPORT INFORMATION
  Report Type: Spontaneous
  Country: SE (occurrence: SE)
  Receive Date: 20160217
  Receipt Date: 20160217
  Transmission Date: 20160526
  Serious: Yes (Hospitalization)
  Sender: FDA-Public Use
  Company Number: SE-PFIZER INC-2016086710

PATIENT
  Age: 45 Year
  Sex: Male

DRUGS (2)
  1. LYRICA [Suspect]
     Active Substance: PREGABALIN
     Dosage: UNK
     Dates: start: 20160126, end: 20160126
  2. ROHYPNOL [Suspect]
     Active Substance: FLUNITRAZEPAM
     Dosage: UNK
     Dates: start: 20160126, end: 20160126

REACTIONS (5)
  - Fatigue [Unknown]
  - Anxiety [Recovered/Resolved]
  - Toxicity to various agents [Unknown]
  - Lethargy [Unknown]
  - Obsessive-compulsive disorder [Recovered/Resolved]

NARRATIVE: CASE EVENT DATE: 20160126
